FAERS Safety Report 4682418-5 (Version None)
Quarter: 2005Q2

REPORT INFORMATION
  Report Type: 
  Country: None (occurrence: None)
  Receive Date: 20050602
  Receipt Date: 20050602
  Transmission Date: 20051028
  Serious: No
  Sender: FDA-Public Use
  Company Number: None

PATIENT
  Age: 43 Year
  Sex: Male
  Weight: 84.8226 kg

DRUGS (2)
  1. PHENYTEK [Suspect]
     Indication: CONVULSION
     Dosage: 300 MG 1 DAILY
  2. PHENYTOIN SODIUM [Suspect]

REACTIONS (3)
  - DRUG INTOLERANCE [None]
  - DRUG LEVEL CHANGED [None]
  - RASH [None]
